FAERS Safety Report 16327087 (Version 2)
Quarter: 2019Q3

REPORT INFORMATION
  Report Type: Spontaneous
  Country: US (occurrence: US)
  Receive Date: 20190517
  Receipt Date: 20190806
  Transmission Date: 20191004
  Serious: No
  Sender: FDA-Public Use
  Company Number: US-SA-2019SA133567

PATIENT
  Age: 21 Year
  Sex: Female

DRUGS (1)
  1. DUPIXENT [Suspect]
     Active Substance: DUPILUMAB
     Indication: PRODUCT USED FOR UNKNOWN INDICATION
     Dosage: 300 MG, QOW
     Route: 058
     Dates: start: 20190403, end: 201907

REACTIONS (4)
  - Eye discharge [Unknown]
  - Eye swelling [Unknown]
  - Oral herpes [Unknown]
  - Skin irritation [Unknown]

NARRATIVE: CASE EVENT DATE: 20190510
